FAERS Safety Report 5274727-6 (Version None)
Quarter: 2007Q1

REPORT INFORMATION
  Report Type: 
  Country: None (occurrence: None)
  Receive Date: 20070320
  Receipt Date: 20070305
  Transmission Date: 20070707
  Serious: Yes (Other)
  Sender: FDA-Public Use
  Company Number: 07-000531

PATIENT
  Age: 49 Year
  Sex: Female
  Weight: 61.2 kg

DRUGS (4)
  1. DOVONEX [Suspect]
     Indication: PSORIASIS
     Dosage: SEE IMAGE
     Route: 061
     Dates: start: 20060701, end: 20060801
  2. DOVONEX [Suspect]
     Indication: PSORIASIS
     Dosage: SEE IMAGE
     Route: 061
     Dates: start: 20061201, end: 20070101
  3. DOVONEX [Suspect]
     Indication: PSORIASIS
     Dosage: AS NEEDED, BID, TOPICAL
     Route: 061
     Dates: start: 20060701, end: 20070101
  4. SEVERAL UNSPECIFIED MEDICATIONS [Concomitant]

REACTIONS (1)
  - NEPHROLITHIASIS [None]
